FAERS Safety Report 5370858-0 (Version None)
Quarter: 2007Q2

REPORT INFORMATION
  Report Type: 
  Country: None (occurrence: None)
  Receive Date: 20070626
  Receipt Date: 20070625
  Transmission Date: 20071010
  Serious: Yes (Other)
  Sender: FDA-Public Use
  Company Number: A0659582A

PATIENT
  Sex: Male

DRUGS (1)
  1. DEBROX [Suspect]
     Route: 001

REACTIONS (4)
  - CLAUSTROPHOBIA [None]
  - DEAFNESS [None]
  - EAR DISCOMFORT [None]
  - EXPIRED DRUG ADMINISTERED [None]
